FAERS Safety Report 22328572 (Version 1)
Quarter: 2023Q2

REPORT INFORMATION
  Report Type: Spontaneous
  Country: US (occurrence: US)
  Receive Date: 20230517
  Receipt Date: 20230517
  Transmission Date: 20230721
  Serious: No
  Sender: FDA-Public Use
  Company Number: US-RADIUS HEALTH INC.-2022US005983

PATIENT
  Age: 65 Year
  Sex: Female

DRUGS (1)
  1. TYMLOS [Suspect]
     Active Substance: ABALOPARATIDE
     Indication: Senile osteoporosis
     Dosage: 80 MICROGRAM, QD
     Route: 058
     Dates: start: 20221007, end: 202212

REACTIONS (8)
  - Contusion [Not Recovered/Not Resolved]
  - Paraesthesia [Unknown]
  - Arthralgia [Unknown]
  - Palpitations [Unknown]
  - Pain [Not Recovered/Not Resolved]
  - Nausea [Not Recovered/Not Resolved]
  - Injection site pain [Not Recovered/Not Resolved]
  - Insomnia [Not Recovered/Not Resolved]

NARRATIVE: CASE EVENT DATE: 20221201
